FAERS Safety Report 4831467-2 (Version None)
Quarter: 2005Q4

REPORT INFORMATION
  Report Type: 
  Country: None (occurrence: None)
  Receive Date: 20051116
  Receipt Date: 20051101
  Transmission Date: 20060501
  Serious: Yes (Other)
  Sender: FDA-Public Use
  Company Number: AZAUS200500405

PATIENT
  Age: 75 Year
  Sex: Male

DRUGS (2)
  1. VIDAZA [Suspect]
     Indication: MYELODYSPLASTIC SYNDROME
     Dosage: 75 MG/M2 (DAILY X 7 DAYS, EVERY 28 DAYS)
  2. TAMSULOSIN HCL [Concomitant]

REACTIONS (4)
  - ACUTE MYELOID LEUKAEMIA [None]
  - DISEASE PROGRESSION [None]
  - NAUSEA [None]
  - REFRACTORY ANAEMIA [None]
